FAERS Safety Report 6698461-0 (Version None)
Quarter: 2010Q2

REPORT INFORMATION
  Report Type: 
  Country: None (occurrence: None)
  Receive Date: 20100427
  Receipt Date: 20100419
  Transmission Date: 20101027
  Serious: Yes (Death, Other)
  Sender: FDA-Public Use
  Company Number: US-AMGEN-QUU407351

PATIENT
  Sex: Female

DRUGS (8)
  1. NPLATE [Suspect]
     Indication: IDIOPATHIC THROMBOCYTOPENIC PURPURA
     Dates: start: 20090717, end: 20091214
  2. NPLATE [Suspect]
     Indication: CHRONIC LYMPHOCYTIC LEUKAEMIA
  3. NPLATE [Suspect]
     Indication: NON-HODGKIN'S LYMPHOMA
  4. IMMU-G [Concomitant]
     Dates: start: 20060103
  5. DANAZOL [Concomitant]
     Dates: start: 20090625, end: 20090701
  6. RITUXIMAB [Concomitant]
     Dates: start: 20090710, end: 20090731
  7. PRILOSEC [Concomitant]
  8. ATIVAN [Concomitant]

REACTIONS (2)
  - ANAEMIA [None]
  - DEATH [None]
